FAERS Safety Report 15201461 (Version 1)
Quarter: 2018Q4

REPORT INFORMATION
  Report Type: Spontaneous
  Country: FR (occurrence: FR)
  Receive Date: 20180726
  Receipt Date: 20180726
  Transmission Date: 20190204
  Serious: Yes (Hospitalization)
  Sender: FDA-Public Use
  Company Number: FR-ACCORD-070137

PATIENT
  Age: 66 Year
  Sex: Female
  Weight: 66 kg

DRUGS (9)
  1. TERALITHE [Suspect]
     Active Substance: LITHIUM CARBONATE
     Indication: BIPOLAR DISORDER
     Route: 048
     Dates: end: 201603
  2. ATACAND [Concomitant]
     Active Substance: CANDESARTAN CILEXETIL
  3. CALCIDOSE [Concomitant]
     Active Substance: CALCIUM CARBONATE
  4. ELIQUIS [Concomitant]
     Active Substance: APIXABAN
  5. MOCLAMINE [Concomitant]
     Active Substance: MOCLOBEMIDE
  6. CODEINE PHOSPHATE/PARACETAMOL [Concomitant]
  7. VENLAFAXINE/VENLAFAXINE HYDROCHLORIDE [Suspect]
     Active Substance: VENLAFAXINE HYDROCHLORIDE
     Indication: BIPOLAR DISORDER
     Route: 048
     Dates: end: 201603
  8. THERALENE [Concomitant]
     Active Substance: TRIMEPRAZINE
  9. CLOZAPINE. [Suspect]
     Active Substance: CLOZAPINE
     Indication: BIPOLAR DISORDER
     Route: 048

REACTIONS (2)
  - Generalised tonic-clonic seizure [Recovered/Resolved]
  - Status epilepticus [Recovered/Resolved]

NARRATIVE: CASE EVENT DATE: 20160308
